FAERS Safety Report 6241570-0 (Version None)
Quarter: 2009Q2

REPORT INFORMATION
  Report Type: 
  Country: None (occurrence: None)
  Receive Date: 20090623
  Receipt Date: 20070905
  Transmission Date: 20091009
  Serious: Yes (Hospitalization, Other)
  Sender: FDA-Public Use
  Company Number: MX-ROCHE-337151

PATIENT
  Sex: Male
  Weight: 92 kg

DRUGS (33)
  1. MYCOPHENOLATE MOFETIL [Suspect]
     Route: 048
     Dates: start: 20021219
  2. MYCOPHENOLATE MOFETIL [Suspect]
     Dosage: INCREASED.
     Route: 048
     Dates: start: 20030301
  3. MYCOPHENOLATE MOFETIL [Suspect]
     Route: 048
     Dates: start: 20030402
  4. MYCOPHENOLATE MOFETIL [Suspect]
     Route: 048
     Dates: start: 20030709
  5. MYCOPHENOLATE MOFETIL [Suspect]
     Route: 048
     Dates: start: 20031220
  6. MYCOPHENOLATE MOFETIL [Suspect]
     Route: 048
     Dates: start: 20040707
  7. MYCOPHENOLATE MOFETIL [Suspect]
     Route: 048
     Dates: start: 20040818
  8. MYCOPHENOLATE MOFETIL [Suspect]
     Route: 048
     Dates: start: 20041117
  9. MYCOPHENOLATE MOFETIL [Suspect]
     Route: 048
     Dates: start: 20050613
  10. DACLIZUMAB [Suspect]
     Route: 042
     Dates: start: 20021219, end: 20021219
  11. DACLIZUMAB [Suspect]
     Route: 042
     Dates: start: 20030102
  12. SIROLIMUS [Suspect]
     Route: 048
     Dates: start: 20021220, end: 20030407
  13. PREDNISONE [Suspect]
     Route: 048
     Dates: start: 20021225
  14. PREDNISONE [Suspect]
     Route: 048
     Dates: start: 20030521
  15. PREDNISONE [Suspect]
     Route: 048
     Dates: start: 20031220
  16. NIFEDIPINE [Concomitant]
     Route: 048
     Dates: start: 20021226
  17. NIFEDIPINE [Concomitant]
     Route: 048
     Dates: start: 20030521
  18. NIFEDIPINE [Concomitant]
     Route: 048
     Dates: start: 20031014
  19. RANITIDINE [Concomitant]
     Route: 048
     Dates: start: 20021222
  20. METOPROLOL SUCCINATE [Concomitant]
     Route: 048
     Dates: start: 20030103
  21. PRAVASTATIN [Concomitant]
     Route: 048
     Dates: start: 20021224
  22. PRAVASTATIN [Concomitant]
     Route: 048
     Dates: start: 20030117, end: 20040128
  23. CALCIUM CARBONATE [Concomitant]
     Route: 048
     Dates: start: 20021224
  24. SULFAMETHOXAZOLE [Concomitant]
     Route: 048
     Dates: start: 20021224
  25. TACROLIMUS [Suspect]
     Route: 048
     Dates: start: 20030405, end: 20030520
  26. TACROLIMUS [Suspect]
     Route: 048
     Dates: start: 20030625
  27. TACROLIMUS [Suspect]
     Route: 048
     Dates: start: 20040225
  28. TACROLIMUS [Suspect]
     Route: 048
     Dates: start: 20041203
  29. TACROLIMUS [Suspect]
     Route: 048
     Dates: start: 20050323
  30. TACROLIMUS [Suspect]
     Route: 048
     Dates: start: 20030521, end: 20030624
  31. LOSARTAN POTASSIUM [Concomitant]
     Route: 048
     Dates: start: 20030305
  32. METHYLPREDNISOLONE [Suspect]
     Route: 042
     Dates: start: 20030324, end: 20030327
  33. METHYLPREDNISOLONE [Suspect]
     Route: 042
     Dates: start: 20030405, end: 20030408

REACTIONS (2)
  - BLOOD CREATININE INCREASED [None]
  - LYMPHOCELE [None]
